FAERS Safety Report 5296698-9 (Version None)
Quarter: 2007Q2

REPORT INFORMATION
  Report Type: 
  Country: None (occurrence: None)
  Receive Date: 20070413
  Receipt Date: 20070403
  Transmission Date: 20071010
  Serious: Yes (Hospitalization, Other)
  Sender: FDA-Public Use
  Company Number: JP-PFIZER INC-2007022592

PATIENT
  Sex: Female

DRUGS (10)
  1. SULPERAZON [Suspect]
     Indication: PYREXIA
     Dosage: DAILY DOSE:2GRAM
     Route: 042
     Dates: start: 20070114, end: 20070121
  2. ALEVIATIN [Suspect]
     Route: 048
     Dates: start: 20070102, end: 20070119
  3. POTACOL-R [Concomitant]
     Route: 042
     Dates: start: 20070105, end: 20070122
  4. NEOLAMIN 3B INJ. [Concomitant]
     Route: 042
     Dates: start: 20070105, end: 20070122
  5. NICHOLIN [Concomitant]
     Route: 042
     Dates: start: 20070105, end: 20070122
  6. GLYCEOL [Concomitant]
     Route: 042
     Dates: start: 20070105, end: 20070113
  7. SIGMART [Concomitant]
     Route: 048
  8. MICARDIS [Concomitant]
  9. SELBEX [Concomitant]
  10. PRIMPERAN INJ [Concomitant]
     Route: 042
     Dates: start: 20070105, end: 20070122

REACTIONS (1)
  - AGRANULOCYTOSIS [None]
